FAERS Safety Report 7718712-0 (Version None)
Quarter: 2011Q3

REPORT INFORMATION
  Report Type: 
  Country: None (occurrence: None)
  Receive Date: 20110830
  Receipt Date: 20110824
  Transmission Date: 20111222
  Serious: Yes (Disabling)
  Sender: FDA-Public Use
  Company Number: JP-BAYER-2011-033118

PATIENT
  Age: 49 Year
  Sex: Male
  Weight: 57 kg

DRUGS (6)
  1. NEXAVAR [Suspect]
     Indication: RENAL CELL CARCINOMA
     Dosage: DAILY DOSE 800 MG
     Route: 048
     Dates: start: 20090302, end: 20090317
  2. NEXAVAR [Suspect]
     Dosage: DAILY DOSE 200 MG
     Route: 048
     Dates: start: 20090323, end: 20090415
  3. OXYCONTIN [Concomitant]
     Indication: METASTATIC PAIN
     Dosage: DAILY DOSE 30 MG
     Route: 048
     Dates: start: 20091126, end: 20100120
  4. NEXAVAR [Suspect]
     Dosage: DAILY DOSE 800 MG
     Route: 048
     Dates: start: 20100107
  5. OXYCONTIN [Concomitant]
     Dosage: DAILY DOSE 40 MG
     Route: 048
     Dates: start: 20100121, end: 20100318
  6. NEXAVAR [Suspect]
     Dosage: DAILY DOSE 400 MG
     Route: 048
     Dates: start: 20090416

REACTIONS (4)
  - RASH [None]
  - HYPERTENSION [None]
  - VISUAL ACUITY REDUCED [None]
  - DIARRHOEA [None]
